FAERS Safety Report 5957164-8 (Version None)
Quarter: 2008Q4

REPORT INFORMATION
  Report Type: 
  Country: None (occurrence: None)
  Receive Date: 20081118
  Receipt Date: 20081107
  Transmission Date: 20090506
  Serious: Yes (Hospitalization, Disabling, Other)
  Sender: FDA-Public Use
  Company Number: AU-PFIZER INC-2008090417

PATIENT
  Sex: Male

DRUGS (3)
  1. SUTENT [Suspect]
     Indication: GASTROINTESTINAL STROMAL TUMOUR
     Route: 048
     Dates: start: 20080924, end: 20081010
  2. PANADEINE [Concomitant]
     Indication: PAIN
     Dosage: TEXT:2 TABLETS
     Route: 048
  3. FENTANYL [Concomitant]
     Indication: PAIN
     Route: 061

REACTIONS (8)
  - ASCITES [None]
  - BLOOD CREATININE ABNORMAL [None]
  - DISEASE PROGRESSION [None]
  - GASTROINTESTINAL STROMAL TUMOUR [None]
  - GENERAL PHYSICAL HEALTH DETERIORATION [None]
  - LETHARGY [None]
  - MOBILITY DECREASED [None]
  - OEDEMA PERIPHERAL [None]
